FAERS Safety Report 8394953-7 (Version None)
Quarter: 2012Q2

REPORT INFORMATION
  Report Type: 
  Country: None (occurrence: None)
  Receive Date: 20120530
  Receipt Date: 20111212
  Transmission Date: 20120825
  Serious: No
  Sender: FDA-Public Use
  Company Number: US-GLAXOSMITHKLINE-A0958034A

PATIENT
  Age: 68 Year
  Sex: Female
  Weight: 36 kg

DRUGS (2)
  1. TRACLEER [Concomitant]
     Dosage: 125MG TWICE PER DAY
  2. FLOLAN [Suspect]
     Indication: PULMONARY ARTERIAL HYPERTENSION
     Dates: start: 20040723

REACTIONS (1)
  - BACK PAIN [None]
